FAERS Safety Report 21775421 (Version 2)
Quarter: 2023Q1

REPORT INFORMATION
  Report Type: Report from Study
  Country: PR (occurrence: PR)
  Receive Date: 20221226
  Receipt Date: 20230331
  Transmission Date: 20230418
  Serious: Yes (Other)
  Sender: FDA-Public Use
  Company Number: PR-ABBVIE-4247785

PATIENT
  Sex: Female
  Weight: 62.142 kg

DRUGS (1)
  1. HUMIRA [Suspect]
     Active Substance: ADALIMUMAB
     Indication: Hidradenitis
     Route: 058
     Dates: start: 20220505

REACTIONS (7)
  - Toxicity to various agents [Unknown]
  - Drug ineffective [Unknown]
  - Diarrhoea [Recovered/Resolved]
  - Skin lesion [Not Recovered/Not Resolved]
  - Nodule [Recovering/Resolving]
  - Cyst [Recovering/Resolving]
  - Purulence [Unknown]

NARRATIVE: CASE EVENT DATE: 20220901
